FAERS Safety Report 9774536 (Version 2)
Quarter: 2013Q4

REPORT INFORMATION
  Report Type: Spontaneous
  Country: DE (occurrence: DE)
  Receive Date: 20131220
  Receipt Date: 20131220
  Transmission Date: 20140711
  Serious: Yes (Other)
  Sender: FDA-Public Use
  Company Number: DE-009507513-1312DEU004845

PATIENT
  Age: 75 Year
  Sex: Male
  Weight: 74 kg

DRUGS (6)
  1. FOSAVANCE [Suspect]
     Indication: OSTEOPOROSIS
     Dosage: 70MG/5600LU, QW
     Route: 048
     Dates: start: 20090716, end: 20131128
  2. METHOTREXATE [Concomitant]
     Indication: RHEUMATOID ARTHRITIS
     Dosage: UNK, QW
     Route: 058
     Dates: start: 20050523
  3. PRADAXA [Concomitant]
     Indication: ATRIAL FIBRILLATION
     Dosage: 110 MG, BID
     Route: 048
     Dates: start: 201303
  4. URBASON [Concomitant]
     Indication: RHEUMATOID ARTHRITIS
     Dosage: 6 MG, QD
     Dates: start: 200003
  5. TILIDIN [Concomitant]
     Indication: RHEUMATOID ARTHRITIS
     Dosage: SOLUTION, PRN
     Route: 048
     Dates: start: 200509
  6. FOLIC ACID [Concomitant]
     Dosage: 5 MG, QW
     Dates: start: 20050523

REACTIONS (6)
  - Acute myocardial infarction [Unknown]
  - Local swelling [Not Recovered/Not Resolved]
  - Local swelling [Not Recovered/Not Resolved]
  - Joint swelling [Not Recovered/Not Resolved]
  - Dyspepsia [Recovering/Resolving]
  - Dysphagia [Recovering/Resolving]
